FAERS Safety Report 8270332-8 (Version None)
Quarter: 2012Q2

REPORT INFORMATION
  Report Type: 
  Country: None (occurrence: None)
  Receive Date: 20120410
  Receipt Date: 20120402
  Transmission Date: 20120825
  Serious: Yes (Other)
  Sender: FDA-Public Use
  Company Number: FR-UCBSA-033610

PATIENT
  Age: 39 Year
  Sex: Female
  Weight: 70 kg

DRUGS (3)
  1. CIMZIA [Suspect]
     Indication: RHEUMATOID ARTHRITIS
     Dosage: SINGLE INTAKE
     Route: 058
     Dates: start: 20110301, end: 20110301
  2. METHOTREXATE [Suspect]
     Indication: RHEUMATOID ARTHRITIS
     Route: 048
     Dates: end: 20110401
  3. PREDNISONE TAB [Concomitant]
     Indication: RHEUMATOID ARTHRITIS
     Route: 048
     Dates: start: 20110701, end: 20111101

REACTIONS (3)
  - PREMATURE DELIVERY [None]
  - PREGNANCY ON ORAL CONTRACEPTIVE [None]
  - PREGNANCY [None]
